FAERS Safety Report 7637728-6 (Version None)
Quarter: 2011Q3

REPORT INFORMATION
  Report Type: 
  Country: None (occurrence: None)
  Receive Date: 20110727
  Receipt Date: 20110718
  Transmission Date: 20111222
  Serious: Yes (Other)
  Sender: FDA-Public Use
  Company Number: SE-AMGEN-SWECT2011010647

PATIENT
  Age: 27 Year
  Sex: Female

DRUGS (2)
  1. ETANERCEPT [Suspect]
     Indication: ANKYLOSING SPONDYLITIS
     Dosage: 50 MG, QWK
     Route: 058
     Dates: start: 20100503, end: 20110207
  2. DICLOFENAC SODIUM [Concomitant]
     Dosage: UNK
     Dates: start: 20100503

REACTIONS (1)
  - GENITAL NEOPLASM MALIGNANT FEMALE [None]
